FAERS Safety Report 9702211 (Version 2)
Quarter: 2013Q4

REPORT INFORMATION
  Report Type: Report from Study
  Country: AR (occurrence: AR)
  Receive Date: 20131121
  Receipt Date: 20131121
  Transmission Date: 20140711
  Serious: Yes (Other)
  Sender: FDA-Public Use
  Company Number: PHHY2013AR130652

PATIENT
  Sex: Female

DRUGS (4)
  1. TRILEPTAL [Suspect]
     Indication: CONVULSION
     Dosage: ONE AND A HALF TABLETS IN THE MORNING AND ONE AND A HALF TABLETS IN THE AFTERNOON
     Route: 048
  2. DIAZEPAM [Concomitant]
     Dosage: UNK UKN, UNK
  3. HYDROXYCHLOROQUINE [Concomitant]
     Dosage: UNK UKN, UNK
  4. GENTEAL                            /03186201/ [Concomitant]
     Dosage: UNK UKN, UNK
     Dates: start: 2013

REACTIONS (2)
  - Syncope [Recovered/Resolved]
  - Convulsion [Recovered/Resolved]
